FAERS Safety Report 21917500 (Version 1)
Quarter: 2023Q1

REPORT INFORMATION
  Report Type: Other
  Country: DE (occurrence: DE)
  Receive Date: 20230126
  Receipt Date: 20230126
  Transmission Date: 20230418
  Serious: Yes (Congenital Anomaly, Other)
  Sender: FDA-Public Use
  Company Number: DE-MACLEODS PHARMACEUTICALS US LTD-MAC2023039435

PATIENT

DRUGS (7)
  1. ARIPIPRAZOLE [Suspect]
     Active Substance: ARIPIPRAZOLE
     Indication: Product used for unknown indication
     Dosage: 5 MILLIGRAM, QD (DURING 1 TRIMESTER OF PREGNANCY, 0. - 38.6. GESTATIONAL WEEK)
     Route: 064
     Dates: start: 20210221, end: 20220118
  2. LITHIUM CARBONATE [Suspect]
     Active Substance: LITHIUM CARBONATE
     Indication: Product used for unknown indication
     Dosage: 900 MILLIGRAM, QD (900 [MG/D ]/ INITIAL 900MG DAILY, FROM WEEK 32 DOSAGE REDUCED 2 SEPARATED DOSES,
     Route: 064
     Dates: start: 20210421, end: 20220106
  3. LEVOMEPROMAZINE [Suspect]
     Active Substance: LEVOMEPROMAZINE
     Indication: Product used for unknown indication
     Dosage: 50 MILLIGRAM, QD (DURING 1 TRIMESTER, 0-38.1 GESTATIONAL WEEK)
     Route: 064
     Dates: start: 20210421, end: 20220113
  4. TOZINAMERAN [Suspect]
     Active Substance: TOZINAMERAN
     Indication: Product used for unknown indication
     Dosage: UNK (1 TRIMESTER, 12.6. - 12.6. GESTATIONAL WEEK)
     Route: 064
     Dates: start: 20210720, end: 20210720
  5. TOZINAMERAN [Suspect]
     Active Substance: TOZINAMERAN
     Dosage: UNK (DURING 2 TRIMESTER, 17.6-17.6 GESTATIONAL WEEK)
     Route: 064
     Dates: start: 20210824, end: 20210824
  6. TOZINAMERAN [Suspect]
     Active Substance: TOZINAMERAN
     Dosage: UNK
     Route: 063
  7. IBUPROFEN [Concomitant]
     Active Substance: IBUPROFEN
     Indication: Product used for unknown indication
     Dosage: UNK, PRN (IF REQUIRED, DURING 1 TRIMESTER, 0-17 GESTATIONAL WEEK)
     Route: 064

REACTIONS (3)
  - Hypospadias [Not Recovered/Not Resolved]
  - Cerebral calcification [Recovered/Resolved]
  - Foetal exposure during pregnancy [Unknown]
